FAERS Safety Report 9780713 (Version 1)
Quarter: 2013Q4

REPORT INFORMATION
  Report Type: Report from Study
  Country: FI (occurrence: FI)
  Receive Date: 20131224
  Receipt Date: 20131224
  Transmission Date: 20140711
  Serious: Yes (Hospitalization, Other)
  Sender: FDA-Public Use
  Company Number: PHHY2013FI149232

PATIENT
  Age: 23 Year
  Sex: Female

DRUGS (2)
  1. LEPONEX [Suspect]
     Dosage: UNK
     Dates: end: 201312
  2. LEPONEX [Suspect]
     Dosage: 50 MG, DAILY
     Dates: start: 201312

REACTIONS (3)
  - Gastroenteritis viral [Unknown]
  - White blood cell count decreased [Not Recovered/Not Resolved]
  - Neutrophil count decreased [Not Recovered/Not Resolved]
